FAERS Safety Report 4521149-9 (Version None)
Quarter: 2004Q4

REPORT INFORMATION
  Report Type: 
  Country: None (occurrence: None)
  Receive Date: 20041206
  Receipt Date: 20041122
  Transmission Date: 20050328
  Serious: Yes (Hospitalization)
  Sender: FDA-Public Use
  Company Number: 2004097068

PATIENT
  Age: 53 Year
  Sex: Male

DRUGS (5)
  1. GABAPENTIN [Suspect]
     Indication: NEUROPATHIC PAIN
  2. THERAPEUTIC RADIOPHARMACEUTICALS (THERAPEUTIC RADIOPHARMACEUTICALS) [Concomitant]
  3. LANSOPRAZOLE [Concomitant]
  4. MORPHINE SULFATE [Concomitant]
  5. SENNA (SENNA) [Concomitant]

REACTIONS (8)
  - ABDOMINAL PAIN UPPER [None]
  - AGRANULOCYTOSIS [None]
  - DECREASED IMMUNE RESPONSIVENESS [None]
  - LYMPHADENOPATHY [None]
  - NEUROPATHIC PAIN [None]
  - NEUTROPENIC SEPSIS [None]
  - UPPER RESPIRATORY TRACT INFECTION [None]
  - WHITE BLOOD CELL COUNT DECREASED [None]
